FAERS Safety Report 6588458-3 (Version None)
Quarter: 2010Q1

REPORT INFORMATION
  Report Type: 
  Country: None (occurrence: None)
  Receive Date: 20100218
  Receipt Date: 20100208
  Transmission Date: 20100710
  Serious: Yes (Hospitalization)
  Sender: FDA-Public Use
  Company Number: BR-ROCHE-684854

PATIENT
  Age: 22 Year
  Sex: Male

DRUGS (2)
  1. ROACUTAN [Suspect]
     Indication: ACNE
     Route: 048
  2. ROACUTAN [Suspect]
     Dosage: FOR ACNE RELAPSE
     Route: 048
     Dates: start: 20090101

REACTIONS (3)
  - ACNE [None]
  - HAND FRACTURE [None]
  - SCAR [None]
